FAERS Safety Report 9732451 (Version 1)
Quarter: 2013Q4

REPORT INFORMATION
  Report Type: Spontaneous
  Country: GB (occurrence: GB)
  Receive Date: 20131204
  Receipt Date: 20131204
  Transmission Date: 20140711
  Serious: Yes (Other)
  Sender: FDA-Public Use
  Company Number: PHHY2013GB137976

PATIENT
  Age: 45 Year
  Sex: Female
  Weight: 104 kg

DRUGS (1)
  1. DOXYCYCLINE [Suspect]
     Indication: LYME DISEASE
     Dosage: 100 MG, BID
     Route: 048
     Dates: start: 20131104

REACTIONS (8)
  - Thinking abnormal [Not Recovered/Not Resolved]
  - Visual impairment [Not Recovered/Not Resolved]
  - Tremor [Not Recovered/Not Resolved]
  - Neck pain [Not Recovered/Not Resolved]
  - Palpitations [Not Recovered/Not Resolved]
  - Dizziness [Not Recovered/Not Resolved]
  - Anxiety [Not Recovered/Not Resolved]
  - Headache [Not Recovered/Not Resolved]
